FAERS Safety Report 9371396 (Version 2)
Quarter: 2013Q2

REPORT INFORMATION
  Report Type: Spontaneous
  Country: ES (occurrence: ES)
  Receive Date: 20130627
  Receipt Date: 20130627
  Transmission Date: 20140414
  Serious: Yes (Hospitalization, Other)
  Sender: FDA-Public Use
  Company Number: ES-RANBAXY-2013RR-70330

PATIENT
  Age: 32 Year
  Sex: Male

DRUGS (7)
  1. IBUPROFEN [Suspect]
     Indication: POSTOPERATIVE CARE
     Dosage: UNK
     Route: 065
  2. DIPYRONE [Suspect]
     Indication: POSTOPERATIVE CARE
     Dosage: UNK
     Route: 048
  3. DIPYRONE [Suspect]
     Indication: ALLERGY TEST
     Dosage: 650 MG, UNK
     Route: 048
  4. DIMETICONE [Suspect]
     Indication: POSTOPERATIVE CARE
     Dosage: UNK
     Route: 048
  5. METOCLOPRAMIDE [Suspect]
     Indication: POSTOPERATIVE CARE
     Dosage: UNK
     Route: 048
  6. OXAZEPAM [Suspect]
     Indication: POSTOPERATIVE CARE
     Dosage: UNK
     Route: 048
  7. PARACETAMOL [Suspect]
     Indication: POSTOPERATIVE CARE
     Dosage: UNK
     Route: 065

REACTIONS (5)
  - Drug reaction with eosinophilia and systemic symptoms [Recovered/Resolved]
  - Hepatic failure [None]
  - Jaundice [None]
  - Hepatomegaly [None]
  - Ascites [None]
